FAERS Safety Report 8950960 (Version 1)
Quarter: 2012Q4

REPORT INFORMATION
  Report Type: Spontaneous
  Country: IT (occurrence: None)
  Receive Date: 20121128
  Receipt Date: 20121128
  Transmission Date: 20130627
  Serious: Yes (Other)
  Sender: FDA-Public Use
  Company Number: FK201203515

PATIENT
  Age: 71 Year
  Sex: Female

DRUGS (6)
  1. OXALIPLATIN [Suspect]
     Indication: RECTAL CANCER METASTATIC
     Route: 042
  2. FLUOROURACIL [Suspect]
     Indication: RECTAL CANCER METASTATIC
     Route: 042
  3. LEUCOVORIN CALCIUM [Suspect]
     Indication: RECTAL CANCER METASTATIC
     Route: 042
  4. GEMCITABINE (MANUFACTURER UNKNOWN) (GEMCITABINE) (GEMCITABINE) [Suspect]
     Indication: RECTAL CANCER METASTATIC
  5. GRANULOCYTE COLONY STIMULATING FACTOR [Suspect]
     Indication: RECTAL CANCER METASTATIC
  6. INTERLEUKIN-2/DIPTHERIA TOXIN FUSION PROTEIN [Suspect]
     Indication: RECTAL CANCER METASTATIC
     Dosage: 0.5 x 106 IU
     Route: 058

REACTIONS (1)
  - Sjogren^s syndrome [None]
